FAERS Safety Report 25364584 (Version 1)
Quarter: 2025Q2

REPORT INFORMATION
  Report Type: Spontaneous
  Country: US (occurrence: None)
  Receive Date: 20250527
  Receipt Date: 20250527
  Transmission Date: 20250716
  Serious: Yes (Death)
  Sender: FDA-CTU
  Company Number: None

PATIENT
  Age: 39 Year
  Sex: Female

DRUGS (16)
  1. BIKTARVY [Suspect]
     Active Substance: BICTEGRAVIR SODIUM\EMTRICITABINE\TENOFOVIR ALAFENAMIDE FUMARATE
     Indication: HIV infection
     Dosage: 50 MG/MG DAILY ORAL
     Route: 048
     Dates: start: 20230829, end: 20250516
  2. AMLODIPINE BESYLATE [Concomitant]
     Active Substance: AMLODIPINE BESYLATE
  3. ATORVASTATIN [Concomitant]
     Active Substance: ATORVASTATIN
  4. ASPIRIN [Concomitant]
     Active Substance: ASPIRIN
  5. CARVEDILOL [Concomitant]
     Active Substance: CARVEDILOL
  6. CYANOCOBALAMIN [Concomitant]
     Active Substance: CYANOCOBALAMIN
  7. DIGOXIN [Concomitant]
     Active Substance: DIGOXIN
  8. Docusate 100 mg [Concomitant]
  9. ELIQUIS [Concomitant]
     Active Substance: APIXABAN
  10. ENALAPRIL [Concomitant]
     Active Substance: ENALAPRIL
  11. FUROSEMIDE [Concomitant]
     Active Substance: FUROSEMIDE
  12. Hydrocodone/acetaminophen 7.5-325 mg [Concomitant]
  13. SILDENAFIL [Concomitant]
     Active Substance: SILDENAFIL
  14. SPIRONOLACTONE [Concomitant]
     Active Substance: SPIRONOLACTONE
  15. TRIAMCINOLONE [Concomitant]
     Active Substance: TRIAMCINOLONE
  16. Rymed 2-10 mg [Concomitant]

REACTIONS (1)
  - Death [None]

NARRATIVE: CASE EVENT DATE: 20250516
